FAERS Safety Report 5424017-3 (Version None)
Quarter: 2007Q3

REPORT INFORMATION
  Report Type: 
  Country: None (occurrence: None)
  Receive Date: 20070823
  Receipt Date: 20070813
  Transmission Date: 20080115
  Serious: Yes (Other)
  Sender: FDA-Public Use
  Company Number: DE-PFIZER INC-2007067663

PATIENT
  Sex: Female

DRUGS (1)
  1. CHAMPIX [Suspect]
     Route: 048

REACTIONS (5)
  - ABNORMAL DREAMS [None]
  - DEPRESSION [None]
  - DISTURBANCE IN ATTENTION [None]
  - NERVOUS SYSTEM DISORDER [None]
  - NIGHTMARE [None]
